FAERS Safety Report 10255976 (Version 2)
Quarter: 2014Q3

REPORT INFORMATION
  Report Type: Spontaneous
  Country: IT (occurrence: IT)
  Receive Date: 20140624
  Receipt Date: 20140805
  Transmission Date: 20150326
  Serious: Yes (Other)
  Sender: FDA-Public Use
  Company Number: IT-GLAXOSMITHKLINE-B1005585A

PATIENT
  Age: 55 Year
  Sex: Male

DRUGS (4)
  1. BREVA [Suspect]
     Active Substance: ALBUTEROL\IPRATROPIUM
     Indication: COUGH
     Route: 055
     Dates: start: 20130918, end: 20130925
  2. ATEM [Suspect]
     Active Substance: IPRATROPIUM BROMIDE
     Indication: COUGH
     Route: 055
     Dates: start: 20130918, end: 20130925
  3. AUGMENTIN [Suspect]
     Active Substance: AMOXICILLIN\CLAVULANATE POTASSIUM
     Indication: ANTIBIOTIC PROPHYLAXIS
     Route: 048
     Dates: start: 20130918, end: 20130925
  4. CLENIL [Suspect]
     Active Substance: BECLOMETHASONE DIPROPIONATE
     Indication: COUGH
     Route: 055
     Dates: start: 20130918, end: 20130925

REACTIONS (1)
  - Urticaria [Recovering/Resolving]

NARRATIVE: CASE EVENT DATE: 20130925
